FAERS Safety Report 12325233 (Version 1)
Quarter: 2016Q2

REPORT INFORMATION
  Report Type: Spontaneous
  Country: PL (occurrence: PL)
  Receive Date: 20160502
  Receipt Date: 20160502
  Transmission Date: 20160815
  Serious: Yes (Other)
  Sender: FDA-Public Use
  Company Number: PHHY2016PL056767

PATIENT
  Sex: Male

DRUGS (2)
  1. KETONAL SANDOZ [Suspect]
     Active Substance: KETOPROFEN
     Indication: PRODUCT USED FOR UNKNOWN INDICATION
     Dosage: KETONAL WAS ADMINISTERED VIA INFUSION
     Route: 041
  2. PYRALGIN [Suspect]
     Active Substance: DIPYRONE
     Indication: PRODUCT USED FOR UNKNOWN INDICATION
     Route: 065

REACTIONS (6)
  - Anal sphincter atony [Unknown]
  - Dysaesthesia [Unknown]
  - Sexual dysfunction [Unknown]
  - Anorgasmia [Unknown]
  - Urinary tract disorder [Unknown]
  - Erectile dysfunction [Unknown]
